FAERS Safety Report 6458857-9 (Version None)
Quarter: 2009Q4

REPORT INFORMATION
  Report Type: 
  Country: None (occurrence: None)
  Receive Date: 20091127
  Receipt Date: 20091124
  Transmission Date: 20100525
  Serious: Yes (Other)
  Sender: FDA-Public Use
  Company Number: US-BAYER-200934675NA

PATIENT
  Age: 30 Year
  Sex: Female

DRUGS (2)
  1. MIRENA [Suspect]
     Indication: CONTRACEPTION
     Dosage: CONTINUOUS
     Route: 015
     Dates: start: 20090301, end: 20090929
  2. MIRENA [Suspect]
     Dosage: CONTINUOUS
     Route: 015
     Dates: start: 20090601, end: 20090929

REACTIONS (2)
  - DEVICE DISLOCATION [None]
  - MEDICAL DEVICE COMPLICATION [None]
